FAERS Safety Report 23477259 (Version 1)
Quarter: 2024Q1

REPORT INFORMATION
  Report Type: Report from Study
  Country: US (occurrence: US)
  Receive Date: 20240204
  Receipt Date: 20240204
  Transmission Date: 20240410
  Serious: No
  Sender: FDA-Public Use
  Company Number: US-EXELIXIS-CABO-23065637

PATIENT
  Sex: Male

DRUGS (15)
  1. CABOMETYX [Suspect]
     Active Substance: CABOZANTINIB S-MALATE
     Indication: Renal cell carcinoma
     Dosage: 40 MG
     Dates: start: 20230520, end: 20230703
  2. CABOMETYX [Suspect]
     Active Substance: CABOZANTINIB S-MALATE
     Dosage: 20 MG, QD
     Dates: start: 20230718
  3. ATORVASTATIN [Concomitant]
     Active Substance: ATORVASTATIN
  4. DEXAMETHASONE [Concomitant]
     Active Substance: DEXAMETHASONE
  5. DICLOFENAC [Concomitant]
     Active Substance: DICLOFENAC
  6. HUMALOG [Concomitant]
     Active Substance: INSULIN LISPRO
  7. IBUPROFEN [Concomitant]
     Active Substance: IBUPROFEN
  8. KEPPRA [Concomitant]
     Active Substance: LEVETIRACETAM
  9. LANTUS [Concomitant]
     Active Substance: INSULIN GLARGINE
  10. LISINOPRIL [Concomitant]
     Active Substance: LISINOPRIL
  11. METFORMIN [Concomitant]
     Active Substance: METFORMIN HYDROCHLORIDE
  12. OMEPRAZOLE [Concomitant]
     Active Substance: OMEPRAZOLE
  13. PENTOXIFYLLINE [Concomitant]
     Active Substance: PENTOXIFYLLINE
  14. PROCHLORPERAZINE [Concomitant]
     Active Substance: PROCHLORPERAZINE
  15. MELATONIN [Concomitant]
     Active Substance: MELATONIN

REACTIONS (6)
  - Hyperkeratosis [Unknown]
  - Oral discomfort [Recovering/Resolving]
  - Swelling [Recovered/Resolved]
  - Toothache [Not Recovered/Not Resolved]
  - Central nervous system lesion [Recovering/Resolving]
  - Pelvic mass [Recovering/Resolving]
